FAERS Safety Report 20919551 (Version 1)
Quarter: 2022Q2

REPORT INFORMATION
  Report Type: Report from Study
  Country: AU (occurrence: AU)
  Receive Date: 20220606
  Receipt Date: 20220606
  Transmission Date: 20220721
  Serious: Yes (Death, Hospitalization)
  Sender: FDA-Public Use
  Company Number: AU-MYLANLABS-2022M1042677

PATIENT
  Age: 59 Year
  Sex: Female

DRUGS (6)
  1. FENTANYL [Suspect]
     Active Substance: FENTANYL
     Indication: Pain management
     Dosage: 75 MICROGRAM, QH
     Route: 062
  2. PREGABALIN [Suspect]
     Active Substance: PREGABALIN
     Indication: Pain management
     Dosage: UNK
  3. AMITRIPTYLINE [Suspect]
     Active Substance: AMITRIPTYLINE
     Indication: Antipsychotic therapy
     Dosage: 100 MILLIGRAM, QD (AT NIGHT)
  4. METHADONE [Suspect]
     Active Substance: METHADONE HYDROCHLORIDE
     Indication: Pain management
     Dosage: 5 MILLIGRAM, BID
     Route: 048
  5. MEPERIDINE [Suspect]
     Active Substance: MEPERIDINE
     Indication: Pain management
     Dosage: 50 MILLIGRAM
     Route: 030
  6. DOXYLAMINE [Suspect]
     Active Substance: DOXYLAMINE
     Indication: Sedative therapy
     Dosage: UNK

REACTIONS (3)
  - Respiratory depression [Fatal]
  - Toxicity to various agents [Fatal]
  - Product communication issue [Fatal]
